FAERS Safety Report 9954270 (Version 2)
Quarter: 2014Q1

REPORT INFORMATION
  Report Type: Spontaneous
  Country: US (occurrence: US)
  Receive Date: 20140304
  Receipt Date: 20140304
  Transmission Date: 20141002
  Serious: No
  Sender: FDA-Public Use
  Company Number: US-ABBVIE-12P-163-0948017-00

PATIENT
  Age: 55 Year
  Sex: Female
  Weight: 167.07 kg

DRUGS (5)
  1. HUMIRA [Suspect]
     Indication: RHEUMATOID ARTHRITIS
     Route: 058
     Dates: start: 200601
  2. BYSTOLIC [Concomitant]
     Indication: HYPERTENSION
  3. NORCO [Concomitant]
     Indication: PAIN
  4. HYDROCODONE [Concomitant]
     Indication: PRODUCT USED FOR UNKNOWN INDICATION
  5. ASA [Concomitant]
     Indication: PRODUCT USED FOR UNKNOWN INDICATION

REACTIONS (3)
  - Skin lesion [Recovered/Resolved]
  - Lower respiratory tract infection [Unknown]
  - Sinusitis [Unknown]
